FAERS Safety Report 5314628-8 (Version None)
Quarter: 2007Q2

REPORT INFORMATION
  Report Type: 
  Country: None (occurrence: None)
  Receive Date: 20070502
  Receipt Date: 20070420
  Transmission Date: 20071010
  Serious: Yes (Hospitalization)
  Sender: FDA-Public Use
  Company Number: PHEH2006US11803

PATIENT
  Age: 70 Year
  Sex: Female
  Weight: 81.632 kg

DRUGS (12)
  1. EXJADE [Suspect]
     Indication: IRON OVERLOAD
     Dosage: 1000 MG, QD
     Route: 048
     Dates: start: 20060418, end: 20061030
  2. EXJADE [Suspect]
     Dosage: 1000 MG, QD
     Route: 048
     Dates: start: 20061218, end: 20070201
  3. GLUCOPHAGE - SLOW RELEASE [Concomitant]
     Indication: DIABETES MELLITUS
     Dosage: 1000 MG, BID
     Route: 048
     Dates: start: 20001020
  4. CARDIZEM [Concomitant]
  5. LASIX [Concomitant]
  6. COUMADIN [Concomitant]
     Indication: CATHETERISATION VENOUS
     Dosage: 3 MG, QD
  7. HALOTESTIN [Concomitant]
     Dosage: 10 MG, TID
     Route: 048
  8. NORVASC [Concomitant]
     Dosage: 2.5 MG, QD
     Route: 048
  9. COMPAZINE [Concomitant]
     Indication: NAUSEA
     Dosage: 10 Q4H, PRN
     Route: 048
  10. PERCOCET [Concomitant]
     Indication: PAIN
     Dosage: 2 TABS, Q4H
     Route: 048
  11. PAMELOR [Concomitant]
     Dosage: 50 MG, QD
     Route: 048
     Dates: start: 20001020
  12. AMBIEN [Concomitant]
     Indication: INSOMNIA
     Dosage: 10 MG, QHS
     Route: 048
     Dates: start: 20001020

REACTIONS (6)
  - CHEST PAIN [None]
  - COMPUTERISED TOMOGRAM ABNORMAL [None]
  - DYSPNOEA [None]
  - JUGULAR VEIN THROMBOSIS [None]
  - PULMONARY EMBOLISM [None]
  - THROMBOSIS IN DEVICE [None]
